FAERS Safety Report 9462137 (Version 1)
Quarter: 2013Q3

REPORT INFORMATION
  Report Type: Spontaneous
  Country: US (occurrence: None)
  Receive Date: 20130813
  Receipt Date: 20130813
  Transmission Date: 20140515
  Serious: Yes (Other)
  Sender: FDA-Public Use
  Company Number: 2013P1015075

PATIENT
  Age: 19 Year
  Sex: Male

DRUGS (1)
  1. MYORISAN [Suspect]
     Dates: start: 20130604

REACTIONS (1)
  - Mood altered [None]
